FAERS Safety Report 10193478 (Version 1)
Quarter: 2014Q2

REPORT INFORMATION
  Report Type: Spontaneous
  Country: US (occurrence: US)
  Receive Date: 20140524
  Receipt Date: 20140524
  Transmission Date: 20141212
  Serious: No
  Sender: FDA-Public Use
  Company Number: US-SA-2013SA118844

PATIENT
  Age: 50 Year
  Sex: Female

DRUGS (3)
  1. LANTUS [Suspect]
     Indication: TYPE 2 DIABETES MELLITUS
     Dosage: DOSE:100 UNIT(S)
     Route: 051
  2. HUMALIN [Suspect]
     Route: 065
  3. NOVOLIN R [Suspect]
     Dosage: DOSE:15 UNIT(S)
     Route: 065

REACTIONS (4)
  - Pancreatic disorder [Not Recovered/Not Resolved]
  - Hypertension [Not Recovered/Not Resolved]
  - Overweight [Not Recovered/Not Resolved]
  - Blood glucose increased [Not Recovered/Not Resolved]
